FAERS Safety Report 6792140-7 (Version None)
Quarter: 2010Q2

REPORT INFORMATION
  Report Type: 
  Country: None (occurrence: None)
  Receive Date: 20100624
  Receipt Date: 20080722
  Transmission Date: 20101027
  Serious: No
  Sender: FDA-Public Use
  Company Number: US-PFIZER INC-2008061846

PATIENT
  Sex: Female

DRUGS (2)
  1. XALATAN [Suspect]
     Indication: GLAUCOMA
     Dosage: 0.005%
  2. TRUSOPT [Concomitant]

REACTIONS (4)
  - DRY EYE [None]
  - HEAD DISCOMFORT [None]
  - INCORRECT STORAGE OF DRUG [None]
  - INTRAOCULAR PRESSURE INCREASED [None]
